FAERS Safety Report 10620055 (Version 1)
Quarter: 2014Q4

REPORT INFORMATION
  Report Type: Spontaneous
  Country: US (occurrence: None)
  Receive Date: 20141201
  Receipt Date: 20141201
  Transmission Date: 20150529
  Serious: No
  Sender: FDA-Public Use
  Company Number: None

PATIENT
  Age: 62 Year
  Sex: Female
  Weight: 99.79 kg

DRUGS (1)
  1. METHYLPHENIDATE ER [Suspect]
     Active Substance: METHYLPHENIDATE
     Indication: PRODUCT USED FOR UNKNOWN INDICATION
     Dosage: 1 PILL FOUR TIMES DAILY
     Route: 048
     Dates: start: 20141121

REACTIONS (3)
  - Product quality issue [None]
  - Product substitution issue [None]
  - No therapeutic response [None]

NARRATIVE: CASE EVENT DATE: 20141124
